FAERS Safety Report 7306703-3 (Version None)
Quarter: 2011Q1

REPORT INFORMATION
  Report Type: 
  Country: None (occurrence: None)
  Receive Date: 20110222
  Receipt Date: 20110215
  Transmission Date: 20110831
  Serious: Yes (Life-Threatening)
  Sender: FDA-Public Use
  Company Number: DE-BAXTER-2011BH003702

PATIENT
  Age: 79 Year
  Sex: Male
  Weight: 80 kg

DRUGS (19)
  1. CLARITHROMYCIN [Concomitant]
     Indication: ARTHRITIS INFECTIVE
     Route: 048
     Dates: end: 20110204
  2. GAMMAGARD LIQUID [Suspect]
     Indication: BLOOD IMMUNOGLOBULIN G DECREASED
     Route: 042
     Dates: start: 20110204, end: 20110205
  3. ZIENAM [Concomitant]
     Indication: SEPSIS
     Route: 042
     Dates: start: 20110204
  4. CIPROFLOXACIN [Concomitant]
     Indication: SEPSIS
     Route: 042
     Dates: start: 20110204
  5. ZOMETA [Concomitant]
     Dates: start: 20110127
  6. HEPARIN [Concomitant]
     Indication: THROMBOSIS PROPHYLAXIS
     Route: 058
     Dates: end: 20110204
  7. VANCOMYCIN [Concomitant]
     Indication: SEPSIS
     Route: 042
     Dates: start: 20110204
  8. CALCIUM WITH VITAMIN D [Concomitant]
     Dates: start: 20110127
  9. PANTOPRAZOLE [Concomitant]
     Indication: REFLUX OESOPHAGITIS
     Route: 048
  10. TAVANIC [Concomitant]
     Indication: ARTHRITIS INFECTIVE
     Route: 048
     Dates: end: 20110204
  11. NITROLINGUAL [Concomitant]
     Indication: HYPERTENSION
     Route: 042
     Dates: start: 20110204
  12. GAMMAGARD LIQUID [Suspect]
     Indication: SEPSIS
     Route: 042
     Dates: start: 20110204, end: 20110205
  13. ACETYLSALICYLIC ACID [Concomitant]
     Route: 048
     Dates: end: 20110127
  14. CALCIUM [Concomitant]
     Indication: OSTEITIS DEFORMANS
     Route: 048
     Dates: end: 20110204
  15. TILIDINE [Concomitant]
     Indication: PAIN
     Route: 048
  16. LEVOTHYROXINE SODIUM [Concomitant]
     Indication: THYROIDECTOMY
     Route: 048
  17. AMLODIPINE [Concomitant]
     Indication: HYPERTENSION
     Route: 048
  18. LISINOPRIL [Concomitant]
     Indication: HYPERTENSION
     Route: 048
  19. METAMIZOLE SODIUM [Concomitant]
     Indication: PAIN
     Route: 048
     Dates: start: 20110204

REACTIONS (4)
  - OXYGEN SATURATION DECREASED [None]
  - BRONCHOSPASM [None]
  - DRUG INTOLERANCE [None]
  - ERYTHEMA [None]
